FAERS Safety Report 5707072-2 (Version None)
Quarter: 2008Q2

REPORT INFORMATION
  Report Type: 
  Country: None (occurrence: None)
  Receive Date: 20080416
  Receipt Date: 20080401
  Transmission Date: 20081010
  Serious: Yes (Hospitalization)
  Sender: FDA-Public Use
  Company Number: B0516918A

PATIENT
  Age: 67 Year
  Sex: Female
  Weight: 90 kg

DRUGS (3)
  1. AVANDAMET [Suspect]
     Route: 048
     Dates: start: 20061001, end: 20080301
  2. DIAMICRON [Concomitant]
     Route: 048
  3. ANTICOAGULANT [Concomitant]
     Route: 048

REACTIONS (13)
  - ACUTE PULMONARY OEDEMA [None]
  - BLOOD CHOLESTEROL INCREASED [None]
  - DIZZINESS [None]
  - HAEMOGLOBIN DECREASED [None]
  - HYPERSENSITIVITY [None]
  - MUSCULAR WEAKNESS [None]
  - MYALGIA [None]
  - OEDEMA [None]
  - PRURITUS [None]
  - RASH [None]
  - RENAL FAILURE [None]
  - VISION BLURRED [None]
  - WEIGHT INCREASED [None]
